FAERS Safety Report 10144225 (Version 1)
Quarter: 2014Q2

REPORT INFORMATION
  Report Type: Spontaneous
  Country: US (occurrence: US)
  Receive Date: 20140430
  Receipt Date: 20140430
  Transmission Date: 20141212
  Serious: No
  Sender: FDA-Public Use
  Company Number: US-BAXTER-2014BAX018967

PATIENT
  Sex: Female

DRUGS (1)
  1. NITROGLYCERIN IN 5% DEXTROSE INJECTION [Suspect]
     Indication: OCCUPATIONAL EXPOSURE TO PRODUCT
     Route: 061

REACTIONS (3)
  - Product container issue [Unknown]
  - Occupational exposure to product [Unknown]
  - No adverse event [Recovered/Resolved]
